FAERS Safety Report 14392566 (Version 1)
Quarter: 2018Q1

REPORT INFORMATION
  Report Type: Report from Study
  Country: US (occurrence: US)
  Receive Date: 20180116
  Receipt Date: 20180116
  Transmission Date: 20180509
  Serious: No
  Sender: FDA-Public Use
  Company Number: PHEH2014US008815

PATIENT
  Sex: Female

DRUGS (3)
  1. MYFORTIC [Suspect]
     Active Substance: MYCOPHENOLATE SODIUM
     Indication: RENAL TRANSPLANT
     Dosage: 180 MG, TID
     Route: 048
  2. HECORIA [Suspect]
     Active Substance: TACROLIMUS
     Indication: RENAL TRANSPLANT
     Dosage: 0.5 MG, QD
     Route: 048
  3. HECORIA [Suspect]
     Active Substance: TACROLIMUS
     Dosage: 1 MG, BID
     Route: 048

REACTIONS (3)
  - Dizziness [Unknown]
  - Malaise [Unknown]
  - Nausea [Unknown]
